FAERS Safety Report 19077750 (Version 1)
Quarter: 2021Q1

REPORT INFORMATION
  Report Type: Spontaneous
  Country: US (occurrence: US)
  Receive Date: 20210331
  Receipt Date: 20210331
  Transmission Date: 20210420
  Serious: Yes (Hospitalization)
  Sender: FDA-Public Use
  Company Number: None

PATIENT
  Age: 46 Year
  Sex: Female
  Weight: 89.44 kg

DRUGS (1)
  1. ASPIRIN 27000 MG [Suspect]
     Active Substance: ASPIRIN
     Dates: end: 20210314

REACTIONS (3)
  - Fall [None]
  - Pulmonary embolism [None]
  - Ankle fracture [None]

NARRATIVE: CASE EVENT DATE: 20210314
